FAERS Safety Report 5365339-4 (Version None)
Quarter: 2007Q2

REPORT INFORMATION
  Report Type: 
  Country: None (occurrence: None)
  Receive Date: 20070530
  Receipt Date: 20070206
  Transmission Date: 20071010
  Serious: No
  Sender: FDA-Public Use
  Company Number: 2005PV006082

PATIENT
  Age: 62 Year
  Sex: Male
  Weight: 131.5431 kg

DRUGS (5)
  1. BYETTA [Suspect]
     Indication: DIABETES MELLITUS NON-INSULIN-DEPENDENT
     Dosage: 10 MCG; BID; SC, 5 MCG; BID; SC
     Route: 058
     Dates: start: 20051108, end: 20051208
  2. BYETTA [Suspect]
     Indication: DIABETES MELLITUS NON-INSULIN-DEPENDENT
     Dosage: 10 MCG; BID; SC, 5 MCG; BID; SC
     Route: 058
     Dates: start: 20051209
  3. BYETTA [Suspect]
  4. GLUCOPHAGE [Concomitant]
  5. GLIPIZIDE [Concomitant]

REACTIONS (3)
  - INSOMNIA [None]
  - NAUSEA [None]
  - WEIGHT DECREASED [None]
